FAERS Safety Report 20365545 (Version 1)
Quarter: 2022Q1

REPORT INFORMATION
  Report Type: Spontaneous
  Country: FR (occurrence: FR)
  Receive Date: 20220122
  Receipt Date: 20220122
  Transmission Date: 20220423
  Serious: Yes (Hospitalization)
  Sender: FDA-Public Use
  Company Number: None

PATIENT
  Age: 82 Year
  Sex: Male
  Weight: 67.4 kg

DRUGS (6)
  1. FUROSEMIDE [Interacting]
     Active Substance: FUROSEMIDE
     Indication: Cardiac failure
     Dosage: 80 MG, QD (LONG COURS)
     Route: 048
  2. IRBESARTAN [Interacting]
     Active Substance: IRBESARTAN
     Indication: Cardiac failure
     Dosage: 150 MG, QD (LONG COURS)
     Route: 048
  3. LERCANIDIPINE HYDROCHLORIDE [Interacting]
     Active Substance: LERCANIDIPINE HYDROCHLORIDE
     Indication: Cardiac failure
     Dosage: 10 MG, QD
     Route: 048
     Dates: start: 20210125, end: 20210130
  4. BENSERAZIDE HYDROCHLORIDE\LEVODOPA [Interacting]
     Active Substance: BENSERAZIDE HYDROCHLORIDE\LEVODOPA
     Indication: Parkinson^s disease
     Dosage: 3 DOSAGE FORM, QD (LONG COURS)
     Route: 048
  5. ALFUZOSIN [Interacting]
     Active Substance: ALFUZOSIN
     Indication: Prostatic adenoma
     Dosage: 10 MG, QD (LONG CORES)
     Route: 048
  6. ALDACTONE [Interacting]
     Active Substance: SPIRONOLACTONE
     Indication: Cardiac failure
     Dosage: 25 MG, QD (LONG COURS)
     Route: 048

REACTIONS (1)
  - Hypotension [Recovered/Resolved]

NARRATIVE: CASE EVENT DATE: 20210131
